FAERS Safety Report 8565442-1 (Version None)
Quarter: 2012Q3

REPORT INFORMATION
  Report Type: 
  Country: None (occurrence: None)
  Receive Date: 20120803
  Receipt Date: 20120802
  Transmission Date: 20120928
  Serious: Yes (Death, Hospitalization, Other)
  Sender: FDA-Public Use
  Company Number: AU-PFIZER INC-2012144084

PATIENT
  Age: 82 Year
  Sex: Male

DRUGS (9)
  1. OMEPRAZOLE [Concomitant]
     Dosage: UNK
  2. LASIX [Concomitant]
     Dosage: UNK
  3. PEXSIG [Concomitant]
     Dosage: UNK
  4. ASPIRIN [Concomitant]
     Dosage: UNK
  5. WARFARIN [Concomitant]
     Dosage: UNK
  6. IKOREL [Concomitant]
     Dosage: UNK
  7. PRISTIQ [Suspect]
     Indication: DEPRESSION
     Dosage: 100 MG, IN THE MORNING
     Route: 048
     Dates: start: 20120522, end: 20120611
  8. SPIRONOLACTONE [Concomitant]
     Dosage: UNK
  9. PRO-BANTHINE [Concomitant]
     Dosage: UNK

REACTIONS (6)
  - CARDIAC ARREST [None]
  - CARDIAC FAILURE CONGESTIVE [None]
  - VENTRICULAR FIBRILLATION [None]
  - MAJOR DEPRESSION [None]
  - CARDIAC DEATH [None]
  - DYSPNOEA [None]
